FAERS Safety Report 12397723 (Version 1)
Quarter: 2016Q2

REPORT INFORMATION
  Report Type: Spontaneous
  Country: US (occurrence: None)
  Receive Date: 20160523
  Receipt Date: 20160523
  Transmission Date: 20160815
  Serious: Yes (Disabling)
  Sender: FDA-Public Use
  Company Number: None

PATIENT
  Age: 60 Year
  Sex: Female
  Weight: 94.35 kg

DRUGS (22)
  1. GABAPENTIN. [Suspect]
     Active Substance: GABAPENTIN
     Indication: BURNING SENSATION
     Dosage: 1 PILL 3 TIMES DAILY BY MOUTH
     Route: 048
     Dates: start: 20150930, end: 20160414
  2. BUSPR/HCTZ [Concomitant]
  3. POTASSIUM [Concomitant]
     Active Substance: POTASSIUM
  4. METFORMIN [Concomitant]
     Active Substance: METFORMIN HYDROCHLORIDE
  5. ASPIRIN/LOW DOSE [Concomitant]
  6. GABAPENTIN. [Concomitant]
     Active Substance: GABAPENTIN
  7. LOVASTATIN. [Concomitant]
     Active Substance: LOVASTATIN
  8. ALEVE [Concomitant]
     Active Substance: NAPROXEN SODIUM
  9. SALONPAS PAIN RELIEF [Concomitant]
     Active Substance: MENTHOL\METHYL SALICYLATE
  10. SPIRONOLACT [Concomitant]
  11. NOTRIPTYLINE [Concomitant]
  12. MELOXICAM. [Concomitant]
     Active Substance: MELOXICAM
  13. OXYCOD/ACETAMIA [Concomitant]
  14. GLIMEPIRIDE. [Concomitant]
     Active Substance: GLIMEPIRIDE
  15. CYCLOBENZAPR [Concomitant]
  16. HUMULIN 70/30 [Concomitant]
     Active Substance: INSULIN HUMAN
  17. PIOGLITAZONE. [Concomitant]
     Active Substance: PIOGLITAZONE
  18. LANSOPRAZOLE. [Concomitant]
     Active Substance: LANSOPRAZOLE
  19. ZZZQUIL NIGHTTIME SLEEP-AID [Concomitant]
     Active Substance: DIPHENHYDRAMINE HYDROCHLORIDE
  20. DILTIAZ ER [Concomitant]
  21. VOLTAREN [Concomitant]
     Active Substance: DICLOFENAC SODIUM
  22. KETOCONAZOLE. [Concomitant]
     Active Substance: KETOCONAZOLE

REACTIONS (7)
  - Tremor [None]
  - Peripheral swelling [None]
  - Coordination abnormal [None]
  - Flushing [None]
  - Fatigue [None]
  - Somnolence [None]
  - Feeling hot [None]
